FAERS Safety Report 18422126 (Version 3)
Quarter: 2021Q2

REPORT INFORMATION
  Report Type: Report from Study
  Country: US (occurrence: US)
  Receive Date: 20201023
  Receipt Date: 20210510
  Transmission Date: 20210717
  Serious: Yes (Hospitalization, Other)
  Sender: FDA-Public Use
  Company Number: US-BAUSCH-BL-2020-008500

PATIENT
  Age: 53 Year
  Sex: Female
  Weight: 50.85 kg

DRUGS (6)
  1. RELISTOR [Suspect]
     Active Substance: METHYLNALTREXONE BROMIDE
     Dosage: 0.6 ML
     Route: 058
     Dates: start: 2020, end: 2020
  2. RELISTOR [Suspect]
     Active Substance: METHYLNALTREXONE BROMIDE
     Dosage: 0.6 ML
     Route: 058
     Dates: start: 2020
  3. RELISTOR [Suspect]
     Active Substance: METHYLNALTREXONE BROMIDE
     Indication: CONSTIPATION
     Dosage: AS NEEDED, 0.6 ML
     Route: 058
     Dates: start: 2018
  4. HYDROMORPHONE [Concomitant]
     Active Substance: HYDROMORPHONE
     Indication: PRODUCT USED FOR UNKNOWN INDICATION
  5. RELISTOR [Suspect]
     Active Substance: METHYLNALTREXONE BROMIDE
     Dosage: ONE TIME, 0.6 ML
     Route: 058
  6. RELISTOR [Suspect]
     Active Substance: METHYLNALTREXONE BROMIDE
     Dosage: 0.6 ML
     Route: 058

REACTIONS (7)
  - Off label use [Unknown]
  - Infection [Unknown]
  - Weight decreased [Recovering/Resolving]
  - Product prescribing error [Unknown]
  - Therapy interrupted [Unknown]
  - Abdominal operation [Unknown]
  - Intentional product use issue [Unknown]

NARRATIVE: CASE EVENT DATE: 2020
